FAERS Safety Report 21787773 (Version 1)
Quarter: 2022Q4

REPORT INFORMATION
  Report Type: Spontaneous
  Country: PL (occurrence: PL)
  Receive Date: 20221228
  Receipt Date: 20221228
  Transmission Date: 20230112
  Serious: Yes (Hospitalization)
  Sender: FDA-Public Use
  Company Number: None

PATIENT
  Age: 70 Year
  Sex: Female

DRUGS (16)
  1. CLONAZEPAM [Suspect]
     Active Substance: CLONAZEPAM
     Indication: Delusion
     Dosage: TOTAL DOSE - 20 MG, DURING NIGHT SHIFT
  2. CLOZAPINE [Suspect]
     Active Substance: CLOZAPINE
     Indication: Delusion
     Dosage: STRENGTH: 25 MG, DOSE WAS INCREASED TO 25 MG IN THE MORNING AND 50 MG IN THE EVENING
  3. METOPROLOL [Suspect]
     Active Substance: METOPROLOL
     Indication: Cardiac disorder
     Dosage: 25 MG PER DAY
  4. QUETIAPINE [Suspect]
     Active Substance: QUETIAPINE
     Indication: Aggression
     Dosage: 25 MG OVERNIGHT
  5. DIAZEPAM [Suspect]
     Active Substance: DIAZEPAM
     Indication: Delusion
     Dosage: TOTAL DOSE - 20 MG, DURING NIGHT SHIFT
  6. HALOPERIDOL [Suspect]
     Active Substance: HALOPERIDOL
     Indication: Delusion
     Dosage: TOTAL DOSE - 30 MG, DURING NIGHT SHIFT
  7. SELEGILINE [Suspect]
     Active Substance: SELEGILINE
     Indication: Parkinson^s disease
  8. TRAZODONE [Suspect]
     Active Substance: TRAZODONE HYDROCHLORIDE
     Indication: Sleep disorder
     Dosage: 75 MG PER DAY
  9. AMANTADINE [Concomitant]
     Active Substance: AMANTADINE
     Indication: Parkinson^s disease
  10. BENSERAZIDE\LEVODOPA [Concomitant]
     Active Substance: BENSERAZIDE\LEVODOPA
     Indication: Parkinson^s disease
     Dosage: 500 MG/PER DAY
  11. LORAZEPAM [Concomitant]
     Active Substance: LORAZEPAM
     Indication: Delusion
     Dosage: 1 MG-1MG-2MG
  12. ROPINIROLE [Concomitant]
     Active Substance: ROPINIROLE
     Indication: Parkinson^s disease
     Dosage: 4 MG PER DAY
  13. MIDAZOLAM [Concomitant]
     Active Substance: MIDAZOLAM
     Dosage: INFUSION OF MIDAZOLAM 50 MG IN 50 ML 0.9% NACL AT A DOSE OF 2 ML/H
  14. BENSERAZIDE\LEVODOPA [Concomitant]
     Active Substance: BENSERAZIDE\LEVODOPA
     Indication: Parkinson^s disease
  15. CLOZAPINE [Suspect]
     Active Substance: CLOZAPINE
     Indication: Delusion
     Dosage: STRENGTH: 25 MG, 25 MG ADMINISTERED OVERNIGHT
  16. AMANTADINE [Concomitant]
     Active Substance: AMANTADINE
     Indication: Parkinson^s disease

REACTIONS (4)
  - Pneumonia [Unknown]
  - Neuroleptic malignant syndrome [Unknown]
  - Hypersensitivity [Unknown]
  - Rapid eye movement sleep behaviour disorder [Unknown]
